FAERS Safety Report 9833452 (Version 1)
Quarter: 2014Q1

REPORT INFORMATION
  Report Type: Report from Study
  Country: DE (occurrence: DE)
  Receive Date: 20140122
  Receipt Date: 20140122
  Transmission Date: 20141002
  Serious: Yes (Disabling)
  Sender: FDA-Public Use
  Company Number: DE-ROCHE-1336392

PATIENT
  Sex: Male

DRUGS (5)
  1. RANIBIZUMAB [Suspect]
     Indication: AGE-RELATED MACULAR DEGENERATION
     Dosage: SPLITTED VIAL, AS REQUIRED
     Route: 050
     Dates: start: 20121126
  2. RANIBIZUMAB [Suspect]
     Dosage: AS REQUIRED
     Route: 050
     Dates: start: 20130128
  3. RANIBIZUMAB [Suspect]
     Dosage: AS REQUIRED
     Route: 050
     Dates: start: 20131111
  4. EYLEA [Concomitant]
  5. PHENPROCOUMON [Concomitant]

REACTIONS (5)
  - Visual acuity reduced [Not Recovered/Not Resolved]
  - Subretinal fibrosis [Not Recovered/Not Resolved]
  - Retinal pigment epithelial tear [Not Recovered/Not Resolved]
  - Inappropriate schedule of drug administration [Unknown]
  - Drug ineffective [Unknown]
